FAERS Safety Report 18476631 (Version 3)
Quarter: 2020Q4

REPORT INFORMATION
  Report Type: Spontaneous
  Country: CH (occurrence: CH)
  Receive Date: 20201106
  Receipt Date: 20201209
  Transmission Date: 20210114
  Serious: Yes (Death)
  Sender: FDA-Public Use
  Company Number: CH-ABBVIE-20K-151-3591463-00

PATIENT
  Age: 54 Year
  Sex: Male
  Weight: 50 kg

DRUGS (3)
  1. VENCLYXTO [Suspect]
     Active Substance: VENETOCLAX
     Dosage: UP TITRATION TO 600MG/D
     Route: 048
  2. VENCLYXTO [Suspect]
     Active Substance: VENETOCLAX
     Indication: ACUTE MYELOID LEUKAEMIA
     Dosage: UP TITRATION TO 600MG/D
     Route: 048
     Dates: start: 20200916, end: 20201005
  3. LOW DOSE CYTARABINE [Concomitant]
     Indication: ACUTE MYELOID LEUKAEMIA
     Dosage: LOW DOSE?DAY 1 TO 10
     Route: 058
     Dates: start: 20200910, end: 20200919

REACTIONS (3)
  - Diarrhoea [Recovered/Resolved]
  - Acute myeloid leukaemia [Fatal]
  - Off label use [Unknown]

NARRATIVE: CASE EVENT DATE: 20200919
